FAERS Safety Report 9592324 (Version 1)
Quarter: 2013Q4

REPORT INFORMATION
  Report Type: Spontaneous
  Country: US (occurrence: US)
  Receive Date: 20131004
  Receipt Date: 20131004
  Transmission Date: 20140711
  Serious: Yes (Hospitalization)
  Sender: FDA-Public Use
  Company Number: US-ROCHE-1283190

PATIENT
  Sex: Female

DRUGS (4)
  1. ZELBORAF [Suspect]
     Indication: METASTATIC MALIGNANT MELANOMA
     Route: 048
     Dates: start: 20130515
  2. DIFLUCAN [Concomitant]
  3. NEURONTIN (UNITED STATES) [Concomitant]
  4. NOCON [Concomitant]
     Indication: PAIN

REACTIONS (1)
  - Guillain-Barre syndrome [Unknown]
